FAERS Safety Report 14573185 (Version 1)
Quarter: 2018Q1

REPORT INFORMATION
  Report Type: Report from Study
  Country: US (occurrence: US)
  Receive Date: 20180226
  Receipt Date: 20180226
  Transmission Date: 20180509
  Serious: Yes (Hospitalization, Other)
  Sender: FDA-Public Use
  Company Number: US-FERA PHARMACEUTICALS, LLC-2018PRG00009

PATIENT
  Age: 4 Year
  Sex: Male
  Weight: 18.5 kg

DRUGS (14)
  1. VINCRISTINE [Suspect]
     Active Substance: VINCRISTINE
     Dosage: 1.1 MG, ONCE
     Route: 042
     Dates: start: 20170514, end: 20170524
  2. METHOTREXATE. [Suspect]
     Active Substance: METHOTREXATE
     Indication: ACUTE LYMPHOCYTIC LEUKAEMIA
     Dosage: 12 MG, ONCE (DAY 1)
     Route: 037
     Dates: start: 20170412, end: 20170412
  3. THIOGUANINE [Suspect]
     Active Substance: THIOGUANINE
     Dosage: 60 MG, UNK, MON-TUES
     Route: 048
     Dates: start: 20170510
  4. CYCLOPHOSPHAMIDE. [Suspect]
     Active Substance: CYCLOPHOSPHAMIDE
     Indication: ACUTE LYMPHOCYTIC LEUKAEMIA
     Dosage: 250 MG, ONCE
     Route: 042
     Dates: start: 20170510, end: 20170510
  5. DEXAMETHASONE. [Suspect]
     Active Substance: DEXAMETHASONE
     Dosage: 4 MG, 2X/DAY (DAYS 15-20)
     Route: 048
     Dates: start: 20170426, end: 20170503
  6. VINCRISTINE [Suspect]
     Active Substance: VINCRISTINE
     Indication: ACUTE LYMPHOCYTIC LEUKAEMIA
     Dosage: 1.2 MG, 1X/WEEK (DAYS 1, 8, 15)
     Route: 037
     Dates: start: 20170412
  7. DOXORUBICIN [Suspect]
     Active Substance: DOXORUBICIN
     Indication: ACUTE LYMPHOCYTIC LEUKAEMIA
     Dosage: 19 MG, 1X/WEEK (DAYS 1, 8, 15)
     Route: 042
     Dates: start: 20170412, end: 20170420
  8. INCB018424 [Suspect]
     Active Substance: RUXOLITINIB
     Indication: ACUTE LYMPHOCYTIC LEUKAEMIA
     Dosage: 30 MG, 2X/DAY, (DAYS 1-14) (DAYS 29-42)
     Route: 048
     Dates: start: 20170412
  9. PEG-ASPARGASE [Suspect]
     Active Substance: PEGASPARGASE
     Indication: ACUTE LYMPHOCYTIC LEUKAEMIA
     Dosage: 1975 IU, ONCE (DAY 4)
     Route: 042
     Dates: start: 20170415, end: 20170415
  10. DEXAMETHASONE. [Suspect]
     Active Substance: DEXAMETHASONE
     Indication: ACUTE LYMPHOCYTIC LEUKAEMIA
     Dosage: 3.8 MG, 2X/DAY (DAYS 1-7-15-21)
     Route: 048
     Dates: start: 20170412, end: 20170418
  11. PEG-ASPARGASE [Suspect]
     Active Substance: PEGASPARGASE
     Dosage: 1900 IU, ONCE  (DAY 43)
     Route: 042
     Dates: start: 20170524, end: 20170524
  12. THIOGUANINE [Suspect]
     Active Substance: THIOGUANINE
     Indication: ACUTE LYMPHOCYTIC LEUKAEMIA
     Dosage: 40 MG, UNK, WED-SUN
     Route: 048
     Dates: start: 20170510
  13. METHOTREXATE. [Suspect]
     Active Substance: METHOTREXATE
     Dosage: 12 MG, UNK, (DAYS 29, 36)
     Route: 037
     Dates: start: 20170510, end: 20170517
  14. CYTARABINE. [Suspect]
     Active Substance: CYTARABINE
     Indication: ACUTE LYMPHOCYTIC LEUKAEMIA
     Dosage: 56 MG, 1X/DAY
     Route: 058
     Dates: start: 20170510

REACTIONS (9)
  - Sepsis [Recovered/Resolved]
  - Mucosal inflammation [Unknown]
  - Dehydration [Unknown]
  - Irritability [Unknown]
  - Perianal erythema [Unknown]
  - Abdominal pain [Unknown]
  - Proctalgia [Unknown]
  - Vomiting [Recovering/Resolving]
  - Skin disorder [Unknown]

NARRATIVE: CASE EVENT DATE: 20170501
